FAERS Safety Report 5401045-5 (Version None)
Quarter: 2007Q3

REPORT INFORMATION
  Report Type: 
  Country: None (occurrence: None)
  Receive Date: 20070726
  Receipt Date: 20070713
  Transmission Date: 20080115
  Serious: Yes (Hospitalization, Other)
  Sender: FDA-Public Use
  Company Number: CERZ-11630

PATIENT
  Sex: Male

DRUGS (1)
  1. CEREZYME [Suspect]
     Indication: GAUCHER'S DISEASE
     Dates: start: 20000727

REACTIONS (3)
  - LUNG DISORDER [None]
  - METASTASES TO LIVER [None]
  - OESOPHAGEAL CARCINOMA [None]
